FAERS Safety Report 5055872-7 (Version None)
Quarter: 2006Q3

REPORT INFORMATION
  Report Type: 
  Country: None (occurrence: None)
  Receive Date: 20060720
  Receipt Date: 20060711
  Transmission Date: 20061208
  Serious: Yes (Other)
  Sender: FDA-Public Use
  Company Number: US-JNJFOC-20060702748

PATIENT
  Sex: Female
  Weight: 49.44 kg

DRUGS (5)
  1. DURAGESIC-100 [Suspect]
     Indication: MIGRAINE
     Route: 062
  2. KLONOPIN [Concomitant]
     Route: 048
  3. XANAX [Concomitant]
     Indication: ANXIETY
     Route: 048
  4. TRAZODONE HCL [Concomitant]
     Dosage: 60 MG DOSE, 20 MG TABLET, THREE IN THE EVENING
     Route: 048
  5. HYDROCODONE [Concomitant]
     Indication: PAIN
     Dosage: 10/500 MG TABLET, AS NEEDED IN 24 HOURS ORAL
     Route: 048

REACTIONS (2)
  - RHEUMATOID ARTHRITIS [None]
  - SYSTEMIC LUPUS ERYTHEMATOSUS [None]
